FAERS Safety Report 13250455 (Version 1)
Quarter: 2017Q1

REPORT INFORMATION
  Report Type: Spontaneous
  Country: US (occurrence: US)
  Receive Date: 20170219
  Receipt Date: 20170219
  Transmission Date: 20170428
  Serious: Yes (Death, Hospitalization)
  Sender: FDA-Public Use
  Company Number: US-BEH-2017078169

PATIENT
  Sex: Female
  Weight: 113.38 kg

DRUGS (26)
  1. COUMADIN [Concomitant]
     Active Substance: WARFARIN SODIUM
  2. LANTUS [Concomitant]
     Active Substance: INSULIN GLARGINE
  3. ZYRTEC [Concomitant]
     Active Substance: CETIRIZINE HYDROCHLORIDE
  4. MIRALAX [Concomitant]
     Active Substance: POLYETHYLENE GLYCOL 3350
  5. ARICEPT [Concomitant]
     Active Substance: DONEPEZIL HYDROCHLORIDE
  6. LIDODERM [Concomitant]
     Active Substance: LIDOCAINE
  7. CLONAZEPAM. [Concomitant]
     Active Substance: CLONAZEPAM
  8. NOVOLOG [Concomitant]
     Active Substance: INSULIN ASPART
  9. NITROSTAT [Concomitant]
     Active Substance: NITROGLYCERIN
  10. METOPROLOL. [Concomitant]
     Active Substance: METOPROLOL
  11. FOLIC ACID. [Concomitant]
     Active Substance: FOLIC ACID
  12. RISPERDAL [Concomitant]
     Active Substance: RISPERIDONE
  13. CLONIDINE. [Concomitant]
     Active Substance: CLONIDINE
  14. VALSARTAN. [Concomitant]
     Active Substance: VALSARTAN
  15. ACID CONTROLLER [Concomitant]
     Active Substance: FAMOTIDINE
  16. SIMVASTATIN. [Concomitant]
     Active Substance: SIMVASTATIN
  17. HIZENTRA [Suspect]
     Active Substance: HUMAN IMMUNOGLOBULIN G
     Indication: IMMUNODEFICIENCY COMMON VARIABLE
     Dosage: 25 G, QW
     Route: 058
     Dates: start: 20110425
  18. VITAMIN D3 [Concomitant]
     Active Substance: CHOLECALCIFEROL
  19. EPIPEN [Concomitant]
     Active Substance: EPINEPHRINE
  20. HIZENTRA [Suspect]
     Active Substance: HUMAN IMMUNOGLOBULIN G
     Dosage: UNK
     Route: 058
  21. MELATONIN [Concomitant]
     Active Substance: MELATONIN
  22. DIPHENHYDRAMINE. [Concomitant]
     Active Substance: DIPHENHYDRAMINE
  23. HIZENTRA [Suspect]
     Active Substance: HUMAN IMMUNOGLOBULIN G
     Dosage: UNK
     Route: 058
  24. IRON [Concomitant]
     Active Substance: IRON
  25. VITAMIN C [Concomitant]
     Active Substance: ASCORBIC ACID
  26. SENOKOT [Concomitant]
     Active Substance: SENNOSIDES

REACTIONS (2)
  - Death [Fatal]
  - Hospitalisation [Unknown]
